FAERS Safety Report 20992094 (Version 1)
Quarter: 2022Q2

REPORT INFORMATION
  Report Type: Spontaneous
  Country: US (occurrence: None)
  Receive Date: 20220621
  Receipt Date: 20220621
  Transmission Date: 20220721
  Serious: No
  Sender: FDA-Public Use
  Company Number: None

PATIENT
  Age: 39 Year
  Sex: Female

DRUGS (6)
  1. AMBRISENTAN [Suspect]
     Active Substance: AMBRISENTAN
     Indication: Pulmonary hypertension
     Dosage: FREQUENCY : DAILY;?
     Route: 048
     Dates: start: 20220114
  2. FUROSEMIDE [Concomitant]
     Active Substance: FUROSEMIDE
  3. MUCINEZ [Concomitant]
  4. PEPCID [Concomitant]
     Active Substance: FAMOTIDINE
  5. MAGNESIUM [Concomitant]
     Active Substance: MAGNESIUM
  6. TADALAFIL [Concomitant]
     Active Substance: TADALAFIL

REACTIONS (2)
  - Condition aggravated [None]
  - Loss of personal independence in daily activities [None]

NARRATIVE: CASE EVENT DATE: 20220621
